FAERS Safety Report 15017566 (Version 1)
Quarter: 2018Q2

REPORT INFORMATION
  Report Type: Spontaneous
  Country: US (occurrence: US)
  Receive Date: 20180615
  Receipt Date: 20180615
  Transmission Date: 20180711
  Serious: No
  Sender: FDA-Public Use
  Company Number: US-TEVA-2018-US-907657

PATIENT
  Age: 62 Year
  Sex: Female
  Weight: 72.56 kg

DRUGS (1)
  1. CETIRIZINE W/PSEUDOEPHEDRINE [Suspect]
     Active Substance: CETIRIZINE HYDROCHLORIDE\PSEUDOEPHEDRINE HYDROCHLORIDE
     Indication: UPPER-AIRWAY COUGH SYNDROME
     Dosage: (PSEUDOEPHEDRINE HYDROCHLORIDE 120 MG, CETIRIZINE HYDROCHOLRIDE 5 MG)
     Route: 048
     Dates: start: 2015

REACTIONS (2)
  - Drug ineffective for unapproved indication [Unknown]
  - Drug administered to patient of inappropriate age [Unknown]

NARRATIVE: CASE EVENT DATE: 2015
